FAERS Safety Report 13966383 (Version 3)
Quarter: 2017Q4

REPORT INFORMATION
  Report Type: Report from Study
  Country: FR (occurrence: FR)
  Receive Date: 20170913
  Receipt Date: 20171003
  Transmission Date: 20180320
  Serious: Yes (Hospitalization, Other)
  Sender: FDA-Public Use
  Company Number: FR-GILEAD-2017-0292614

PATIENT
  Age: 57 Year
  Sex: Male
  Weight: 65 kg

DRUGS (9)
  1. METFORMIN [Suspect]
     Active Substance: METFORMIN HYDROCHLORIDE
     Indication: TYPE 2 DIABETES MELLITUS
     Dosage: 500 MG, BID
     Route: 065
     Dates: start: 2015
  2. RIBAVIRIN. [Concomitant]
     Active Substance: RIBAVIRIN
     Indication: CHRONIC HEPATITIS C
  3. CORGARD [Suspect]
     Active Substance: NADOLOL
     Indication: PORTAL HYPERTENSION
     Dosage: 80 MG, QD
     Route: 065
     Dates: start: 20170112
  4. NADOLOL. [Concomitant]
     Active Substance: NADOLOL
  5. TENOFOVIR DISOPROXIL FUMARATE. [Suspect]
     Active Substance: TENOFOVIR DISOPROXIL FUMARATE
     Indication: HEPATITIS B
     Dosage: 245 MG, QD
     Route: 065
     Dates: start: 20120106
  6. HARVONI [Suspect]
     Active Substance: LEDIPASVIR\SOFOSBUVIR
     Indication: CHRONIC HEPATITIS C
     Dosage: UNK
     Route: 065
     Dates: start: 20150104, end: 20150328
  7. FUMAFER [Suspect]
     Active Substance: FERROUS FUMARATE
     Indication: IRON DEFICIENCY
     Dosage: 66 MG, QD
     Route: 065
     Dates: start: 20170324
  8. UVEDOSE [Concomitant]
     Active Substance: CHOLECALCIFEROL
  9. SANDOSTATIN [Concomitant]
     Active Substance: OCTREOTIDE ACETATE

REACTIONS (3)
  - Streptococcal bacteraemia [Unknown]
  - Oesophageal varices haemorrhage [Recovering/Resolving]
  - Streptococcal sepsis [Unknown]

NARRATIVE: CASE EVENT DATE: 20150224
